FAERS Safety Report 13007262 (Version 6)
Quarter: 2017Q1

REPORT INFORMATION
  Report Type: Spontaneous
  Country: ES (occurrence: ES)
  Receive Date: 20161207
  Receipt Date: 20170307
  Transmission Date: 20170428
  Serious: Yes (Other)
  Sender: FDA-Public Use
  Company Number: ES-BIOGEN-2013BI044165

PATIENT
  Age: 50 Year
  Sex: Female

DRUGS (2)
  1. FINGOLIMOD [Concomitant]
     Active Substance: FINGOLIMOD
     Indication: MULTIPLE SCLEROSIS
     Route: 065
     Dates: start: 20130510
  2. TYSABRI [Suspect]
     Active Substance: NATALIZUMAB
     Indication: MULTIPLE SCLEROSIS
     Route: 042
     Dates: start: 200712, end: 201210

REACTIONS (2)
  - Multiple sclerosis relapse [Unknown]
  - Progressive multifocal leukoencephalopathy [Not Recovered/Not Resolved]

NARRATIVE: CASE EVENT DATE: 20110101
